FAERS Safety Report 6332695-X (Version None)
Quarter: 2009Q3

REPORT INFORMATION
  Report Type: 
  Country: None (occurrence: None)
  Receive Date: 20090828
  Receipt Date: 20090824
  Transmission Date: 20100115
  Serious: Yes (Hospitalization)
  Sender: FDA-Public Use
  Company Number: IT-BAYER-200926905GPV

PATIENT
  Age: 95 Year
  Sex: Female

DRUGS (4)
  1. ASPIRIN [Suspect]
     Indication: VASCULAR DEMENTIA
     Dosage: TOTAL DAILY DOSE: 100 MG  UNIT DOSE: 100 MG
     Route: 048
     Dates: start: 20060101
  2. TRANEX [Concomitant]
     Dates: start: 20090723, end: 20090723
  3. ZYPREXA [Concomitant]
     Dates: start: 20090706
  4. PANTORC [Concomitant]
     Dates: start: 20090619

REACTIONS (3)
  - ABDOMINAL PAIN [None]
  - PALLOR [None]
  - RECTAL HAEMORRHAGE [None]
